FAERS Safety Report 18156849 (Version 1)
Quarter: 2020Q3

REPORT INFORMATION
  Report Type: Spontaneous
  Country: US (occurrence: US)
  Receive Date: 20200817
  Receipt Date: 20200817
  Transmission Date: 20201103
  Serious: Yes (Hospitalization)
  Sender: FDA-Public Use
  Company Number: None

PATIENT
  Sex: Male

DRUGS (12)
  1. ENBREL [Suspect]
     Active Substance: ETANERCEPT
     Indication: PSORIATIC ARTHROPATHY
     Dosage: ?          OTHER FREQUENCY:ONCE A WEEK;?
     Route: 058
     Dates: start: 20190918
  2. AMLODIPINE [Concomitant]
     Active Substance: AMLODIPINE BESYLATE
     Dates: start: 20200706
  3. HYDROCO/APAP [Concomitant]
     Active Substance: ACETAMINOPHEN\HYDROCODONE
     Dates: start: 20200719
  4. OMEPRAZOLE. [Concomitant]
     Active Substance: OMEPRAZOLE
     Dates: start: 20200814
  5. FOLIC ACID. [Concomitant]
     Active Substance: FOLIC ACID
     Dates: start: 20200508
  6. METOPROL SUC [Concomitant]
     Dates: start: 20200222
  7. SERTRALINE [Concomitant]
     Active Substance: SERTRALINE HYDROCHLORIDE
     Dates: start: 20200422
  8. TESTOST CYP [Concomitant]
     Active Substance: TESTOSTERONE CYPIONATE
     Dates: start: 20200416
  9. OTREXUP [Suspect]
     Active Substance: METHOTREXATE
     Indication: PSORIASIS
     Dosage: ?          OTHER FREQUENCY:ONCE EVERY WEEK;?
     Route: 058
     Dates: start: 20200229
  10. LISINOPRIL. [Concomitant]
     Active Substance: LISINOPRIL
     Dates: start: 20191023
  11. ONDANSETRON [Concomitant]
     Active Substance: ONDANSETRON
     Dates: start: 20200710
  12. ZOLPIDEM [Concomitant]
     Active Substance: ZOLPIDEM TARTRATE
     Dates: start: 20200724

REACTIONS (2)
  - Depression [None]
  - Shoulder operation [None]
